FAERS Safety Report 5475901-6 (Version None)
Quarter: 2007Q4

REPORT INFORMATION
  Report Type: 
  Country: None (occurrence: None)
  Receive Date: 20071003
  Receipt Date: 20070928
  Transmission Date: 20080405
  Serious: Yes (Other)
  Sender: FDA-Public Use
  Company Number: CH-ELI_LILLY_AND_COMPANY-CH200709006762

PATIENT
  Age: 78 Year
  Sex: Male

DRUGS (9)
  1. ZYPREXA [Suspect]
     Dosage: 10 MG, DAILY (1/D)
     Route: 048
     Dates: start: 20070402
  2. ZYPREXA [Suspect]
     Dosage: 15 MG, DAILY (1/D)
     Route: 048
     Dates: start: 20070404
  3. CLOPIXOL ACUTARD [Concomitant]
     Dosage: 75 MG, OTHER
     Route: 030
     Dates: start: 20070401
  4. STESOLID [Concomitant]
     Dosage: 10 MG, OTHER
     Route: 030
     Dates: start: 20070401
  5. DEPAKENE [Concomitant]
     Dosage: UNK UNK, DAILY (1/D)
     Route: 048
     Dates: start: 20070402
  6. DEPAKENE [Concomitant]
     Dosage: UNK UNK, DAILY (1/D)
     Route: 048
     Dates: start: 20070403
  7. DEPAKENE [Concomitant]
     Dosage: UNK UNK, DAILY (1/D)
     Route: 048
     Dates: start: 20070405
  8. TEMESTA [Concomitant]
     Dosage: 2.5 MG, OTHER
     Route: 048
     Dates: start: 20070402
  9. OXYGEN [Concomitant]
     Indication: RESPIRATORY DEPRESSION
     Dates: start: 20070402, end: 20070403

REACTIONS (1)
  - RESPIRATORY DEPRESSION [None]
